FAERS Safety Report 16034230 (Version 1)
Quarter: 2019Q1

REPORT INFORMATION
  Report Type: Spontaneous
  Country: US (occurrence: US)
  Receive Date: 20190205
  Receipt Date: 20190205
  Transmission Date: 20190418
  Serious: No
  Sender: FDA-Public Use
  Company Number: None

PATIENT
  Age: 60 Year
  Sex: Female
  Weight: 60.33 kg

DRUGS (10)
  1. SUMATRIPTAN. [Concomitant]
     Active Substance: SUMATRIPTAN
  2. HYALURONIC ACID [Concomitant]
     Active Substance: HYALURONIC ACID
  3. PROGESTERONE. [Concomitant]
     Active Substance: PROGESTERONE
  4. ASPIRIN. [Concomitant]
     Active Substance: ASPIRIN
  5. CLARINEX [Concomitant]
     Active Substance: DESLORATADINE
  6. AIMOVIG [Suspect]
     Active Substance: ERENUMAB-AOOE
     Indication: MIGRAINE
     Dosage: ?          QUANTITY:140 MG MILLIGRAM(S);?
     Dates: start: 20181107, end: 20181111
  7. BIOTIN [Concomitant]
     Active Substance: BIOTIN
  8. ESTRADIOL. [Concomitant]
     Active Substance: ESTRADIOL
  9. AMBIEN [Concomitant]
     Active Substance: ZOLPIDEM TARTRATE
  10. COLLAGEN [Concomitant]
     Active Substance: COLLAGEN

REACTIONS (9)
  - Constipation [None]
  - Muscle spasms [None]
  - Pain [None]
  - Dizziness [None]
  - Alopecia [None]
  - Hot flush [None]
  - Tinnitus [None]
  - Night sweats [None]
  - Discomfort [None]
